FAERS Safety Report 9106113 (Version 1)
Quarter: 2013Q1

REPORT INFORMATION
  Report Type: Spontaneous
  Country: US (occurrence: US)
  Receive Date: 20130221
  Receipt Date: 20130221
  Transmission Date: 20140127
  Serious: Yes (Life-Threatening, Hospitalization, Other)
  Sender: FDA-Public Use
  Company Number: PHEH2013US004207

PATIENT
  Age: 66 Year
  Sex: Male
  Weight: 105.5 kg

DRUGS (10)
  1. EXJADE [Suspect]
     Indication: IRON OVERLOAD
     Dosage: 4 DF, QD
     Route: 048
     Dates: end: 20121222
  2. AMIODARONE [Concomitant]
     Dosage: 200 MG, QD
     Route: 048
  3. FUROSEMIDE [Concomitant]
     Dosage: 70 MG, QD
     Route: 048
  4. METOPROLOL [Concomitant]
     Dosage: 0.5 DF, BID
     Route: 048
  5. NEXIUM [Concomitant]
     Dosage: 40 MG, QD
     Route: 048
  6. KCL [Concomitant]
     Dosage: 20 MG, BID
     Route: 048
  7. PREDNISONE [Concomitant]
     Dosage: 0.5 DF, QD
     Route: 048
  8. FLOMAX [Concomitant]
     Dosage: 0.4 MG, QD
     Route: 048
  9. TYLENOL [Concomitant]
     Dosage: 500 MG, PRN
  10. VITAMIN B6 [Concomitant]
     Dosage: 50 MG, QD
     Route: 048

REACTIONS (1)
  - Thrombotic thrombocytopenic purpura [Recovered/Resolved]
